FAERS Safety Report 9706507 (Version 1)
Quarter: 2013Q4

REPORT INFORMATION
  Report Type: Report from Study
  Country: TR (occurrence: TR)
  Receive Date: 20131125
  Receipt Date: 20131125
  Transmission Date: 20140711
  Serious: Yes (Hospitalization)
  Sender: FDA-Public Use
  Company Number: TR-US-EMD SERONO, INC.-7251052

PATIENT
  Age: 36 Year
  Sex: Female
  Weight: 63 kg

DRUGS (7)
  1. REBIF [Suspect]
     Indication: MULTIPLE SCLEROSIS
     Route: 058
     Dates: start: 200212
  2. LIORESAL [Suspect]
     Indication: MUSCLE RELAXANT THERAPY
     Route: 048
     Dates: start: 200212
  3. FAMPRIDINE [Suspect]
     Indication: BALANCE DISORDER
     Route: 048
  4. VENORUTON                          /00027704/ [Concomitant]
     Indication: PRODUCT USED FOR UNKNOWN INDICATION
     Route: 048
     Dates: start: 201303
  5. MINOSET PLUS [Concomitant]
     Indication: PAIN
     Route: 048
     Dates: start: 2011
  6. CORASPIN [Concomitant]
     Indication: PLATELET AGGREGATION INHIBITION
     Route: 048
     Dates: start: 201109
  7. ATORIS                             /01326101/ [Concomitant]
     Indication: BLOOD CHOLESTEROL INCREASED
     Route: 048
     Dates: start: 201109

REACTIONS (4)
  - Cardiovascular disorder [Recovered/Resolved]
  - Hypertension [Not Recovered/Not Resolved]
  - Injection site reaction [Not Recovered/Not Resolved]
  - Injection site erythema [Not Recovered/Not Resolved]
